FAERS Safety Report 6426470-5 (Version None)
Quarter: 2009Q4

REPORT INFORMATION
  Report Type: 
  Country: None (occurrence: None)
  Receive Date: 20091030
  Receipt Date: 20091023
  Transmission Date: 20100525
  Serious: Yes (Other)
  Sender: FDA-Public Use
  Company Number: 2009SP032843

PATIENT
  Sex: Female

DRUGS (2)
  1. CLARITIN-D [Suspect]
     Indication: DRUG USE FOR UNKNOWN INDICATION
     Dosage: ; PO
     Route: 048
  2. ALLEGRA D (FEXOFENADINE HYDROCHLORIDE+PSEUDOEPHEDRINE HYDROCHLORIDE) ( [Suspect]
     Indication: DRUG USE FOR UNKNOWN INDICATION

REACTIONS (2)
  - EYELID OEDEMA [None]
  - GLAUCOMA [None]
